FAERS Safety Report 25441268 (Version 2)
Quarter: 2025Q2

REPORT INFORMATION
  Report Type: Report from Study
  Country: CO (occurrence: CO)
  Receive Date: 20250616
  Receipt Date: 20250617
  Transmission Date: 20250717
  Serious: Yes (Other)
  Sender: BIOVITRUM
  Company Number: CO-AstraZeneca-CH-00796222A

PATIENT
  Age: 5 Month
  Sex: Male
  Weight: 3.835 kg

DRUGS (1)
  1. PALIVIZUMAB [Suspect]
     Active Substance: PALIVIZUMAB
     Indication: Respiratory syncytial virus immunisation
     Route: 030
     Dates: start: 20250121

REACTIONS (4)
  - Nasal congestion [Unknown]
  - Nasal flaring [Unknown]
  - Use of accessory respiratory muscles [Unknown]
  - Bronchiolitis [Unknown]

NARRATIVE: CASE EVENT DATE: 20250129
